FAERS Safety Report 17781443 (Version 1)
Quarter: 2020Q2

REPORT INFORMATION
  Report Type: Spontaneous
  Country: AR (occurrence: AR)
  Receive Date: 20200514
  Receipt Date: 20200514
  Transmission Date: 20200714
  Serious: Yes (Hospitalization, Other)
  Sender: FDA-Public Use
  Company Number: AR-GLAXOSMITHKLINE-AR2020AMR076092

PATIENT
  Age: 48 Year
  Sex: Male

DRUGS (2)
  1. KETOROLAC [Suspect]
     Active Substance: KETOROLAC TROMETHAMINE
     Indication: CHEST INJURY
     Dosage: UNK
  2. DICLOFENAC [Suspect]
     Active Substance: DICLOFENAC
     Indication: CHEST INJURY
     Dosage: UNK

REACTIONS (13)
  - Tubulointerstitial nephritis [Unknown]
  - Rash pruritic [Unknown]
  - Cheilitis [Unknown]
  - Acute kidney injury [Unknown]
  - Rash maculo-papular [Unknown]
  - Dyspnoea [Unknown]
  - Toxic skin eruption [Unknown]
  - Hepatomegaly [Unknown]
  - Interstitial lung disease [Unknown]
  - Hepatitis [Recovering/Resolving]
  - Drug reaction with eosinophilia and systemic symptoms [Unknown]
  - Eosinophilia [Recovering/Resolving]
  - Purpura [Unknown]
